APPROVED DRUG PRODUCT: CAFERGOT
Active Ingredient: CAFFEINE; ERGOTAMINE TARTRATE
Strength: 100MG;2MG **Federal Register determination that product was not discontinued or withdrawn for safety or effectiveness reasons**
Dosage Form/Route: SUPPOSITORY;RECTAL
Application: N009000 | Product #002
Applicant: NOVARTIS PHARMACEUTICALS CORP
Approved: Approved Prior to Jan 1, 1982 | RLD: Yes | RS: No | Type: DISCN